FAERS Safety Report 20280513 (Version 2)
Quarter: 2022Q1

REPORT INFORMATION
  Report Type: Report from Study
  Country: US (occurrence: US)
  Receive Date: 20220103
  Receipt Date: 20220209
  Transmission Date: 20220423
  Serious: No
  Sender: FDA-Public Use
  Company Number: US-BIOVITRUM-2021US11955

PATIENT
  Age: 63 Year
  Sex: Female

DRUGS (1)
  1. KINERET [Suspect]
     Active Substance: ANAKINRA
     Indication: Pericardial disease
     Route: 058
     Dates: start: 20211215

REACTIONS (6)
  - Pericardial disease [Unknown]
  - Condition aggravated [Unknown]
  - Arthralgia [Unknown]
  - Pharyngitis streptococcal [Unknown]
  - Urticaria [Unknown]
  - Off label use [Unknown]

NARRATIVE: CASE EVENT DATE: 20211215
